FAERS Safety Report 8441092 (Version 4)
Quarter: 2013Q1

REPORT INFORMATION
  Report Type: Report from Study
  Country: CA (occurrence: CA)
  Receive Date: 20120305
  Receipt Date: 20130130
  Transmission Date: 20140127
  Serious: Yes (Hospitalization, Other)
  Sender: FDA-Public Use
  Company Number: CA-ROCHE-1043541

PATIENT
  Age: 72 Year
  Sex: Female
  Weight: 58 kg

DRUGS (5)
  1. TOCILIZUMAB [Suspect]
     Indication: RHEUMATOID ARTHRITIS
     Route: 042
     Dates: start: 20101201
  2. CIPRALEX [Concomitant]
  3. TIAZAC [Concomitant]
  4. ATORVASTATIN [Concomitant]
  5. NAPROSYN [Concomitant]
     Route: 065

REACTIONS (6)
  - Intervertebral disc protrusion [Not Recovered/Not Resolved]
  - Arthralgia [Recovering/Resolving]
  - Swelling [Recovering/Resolving]
  - Cough [Recovered/Resolved]
  - Back pain [Unknown]
  - Bone disorder [Not Recovered/Not Resolved]
